FAERS Safety Report 20591216 (Version 2)
Quarter: 2022Q2

REPORT INFORMATION
  Report Type: Report from Study
  Country: US (occurrence: US)
  Receive Date: 20220314
  Receipt Date: 20220413
  Transmission Date: 20220720
  Serious: Yes (Hospitalization)
  Sender: FDA-Public Use
  Company Number: US-TG THERAPEUTICS INC.-TGT002471

PATIENT
  Age: 68 Year
  Sex: Male
  Weight: 98.866 kg

DRUGS (2)
  1. UBLITUXIMAB [Suspect]
     Active Substance: UBLITUXIMAB
     Indication: Chronic lymphocytic leukaemia
     Dosage: 900 MILLIGRAM, Q28D
     Route: 042
     Dates: start: 20220112
  2. UMBRALISIB [Suspect]
     Active Substance: UMBRALISIB
     Indication: Chronic lymphocytic leukaemia
     Dosage: 800 MILLIGRAM, QD
     Route: 048
     Dates: start: 20220112, end: 20220301

REACTIONS (1)
  - Liver injury [Not Recovered/Not Resolved]

NARRATIVE: CASE EVENT DATE: 20220228
